FAERS Safety Report 7624412-8 (Version None)
Quarter: 2011Q3

REPORT INFORMATION
  Report Type: 
  Country: None (occurrence: None)
  Receive Date: 20110720
  Receipt Date: 20110714
  Transmission Date: 20111222
  Serious: Yes (Other)
  Sender: FDA-Public Use
  Company Number: US-PFIZER INC-2010155191

PATIENT
  Sex: Male
  Weight: 79.365 kg

DRUGS (4)
  1. LACOSAMIDE [Interacting]
     Indication: CONVULSION
     Dosage: 200 MG, 2X/DAY
  2. TOVIAZ [Suspect]
     Indication: HYPERTONIC BLADDER
     Dosage: 8 MG, 1X/DAY
     Route: 048
     Dates: start: 20100915, end: 20101120
  3. KEPPRA [Interacting]
     Indication: CONVULSION
     Dosage: 750 MG, 2X/DAY
  4. TOVIAZ [Interacting]
     Indication: IRRITABLE BOWEL SYNDROME

REACTIONS (4)
  - PRURITUS [None]
  - LATEX ALLERGY [None]
  - RASH GENERALISED [None]
  - DRUG INTERACTION [None]
